FAERS Safety Report 8951104 (Version 2)
Quarter: 2013Q1

REPORT INFORMATION
  Report Type: Spontaneous
  Country: US (occurrence: None)
  Receive Date: 20121130
  Receipt Date: 20121207
  Transmission Date: 20140127
  Serious: Yes (Other)
  Sender: FDA-Public Use
  Company Number: 2012-1421

PATIENT
  Age: 57 Year
  Sex: Male
  Weight: 73.8 kg

DRUGS (3)
  1. CARFILZOMIB [Suspect]
     Indication: PLASMA CELL MYELOMA
     Dosage: DAYS 1, 2, 8, 9, 15, 16, INTRAVENOUS
     Dates: start: 20120607, end: 20121109
  2. LENALIDOMIDE [Suspect]
     Indication: PLASMA CELL MYELOMA
     Dosage: 25 MG, DAYS 1-21, ORAL
     Dates: start: 20120608, end: 20121114
  3. DEXAMETHASONE [Suspect]
     Indication: PLASMA CELL MYELOMA

REACTIONS (4)
  - Cardiac failure congestive [None]
  - Ejection fraction decreased [None]
  - Brain natriuretic peptide increased [None]
  - Weight increased [None]
